FAERS Safety Report 4924749-7 (Version None)
Quarter: 2006Q1

REPORT INFORMATION
  Report Type: 
  Country: None (occurrence: None)
  Receive Date: 20060227
  Receipt Date: 20050627
  Transmission Date: 20060701
  Serious: Yes (Other)
  Sender: FDA-Public Use
  Company Number: US-MERCK-0506USA03789M

PATIENT
  Age: 38 Year
  Sex: Female

DRUGS (2)
  1. SINGULAIR [Suspect]
     Indication: SINUSITIS
     Route: 048
     Dates: start: 20040101
  2. SYNTHROID [Concomitant]
     Route: 065

REACTIONS (2)
  - DRUG EXPOSURE DURING PREGNANCY [None]
  - PRE-ECLAMPSIA [None]
